FAERS Safety Report 8819344 (Version 2)
Quarter: 2012Q4

REPORT INFORMATION
  Report Type: 
  Country: US (occurrence: US)
  Receive Date: 20121002
  Receipt Date: 20121119
  Transmission Date: 20130627
  Serious: No
  Sender: FDA-Public Use
  Company Number: US-PFIZER INC-2012241713

PATIENT
  Age: 91 Year
  Sex: Male
  Weight: 63.49 kg

DRUGS (7)
  1. ADVIL PM [Suspect]
     Dosage: 400/50 mg, once a day
     Route: 048
  2. METOPROLOL [Concomitant]
     Indication: HEART DISORDER
     Dosage: 25 mg, 2x/day
  3. ASPIRIN [Concomitant]
     Dosage: UNK
  4. CAMFORTE [Concomitant]
     Dosage: 10 mg, daily
  5. PEPCID [Concomitant]
     Dosage: UNK, as needed
  6. XANAX [Concomitant]
     Dosage: 0.5 mg, once daily
  7. LIPITOR [Concomitant]
     Dosage: 10 mg, daily

REACTIONS (3)
  - Expired drug administered [Unknown]
  - Hypoaesthesia [Unknown]
  - Flushing [Unknown]
